FAERS Safety Report 17571066 (Version 1)
Quarter: 2020Q1

REPORT INFORMATION
  Report Type: Spontaneous
  Country: US (occurrence: US)
  Receive Date: 20200323
  Receipt Date: 20200323
  Transmission Date: 20200409
  Serious: No
  Sender: FDA-Public Use
  Company Number: US-AUROBINDO-AUR-APL-2019-014688

PATIENT
  Sex: Male
  Weight: 113 kg

DRUGS (3)
  1. GABAPENTIN. [Suspect]
     Active Substance: GABAPENTIN
     Dosage: 900 MILLIGRAM, DAILY
     Route: 065
  2. GABAPENTIN. [Suspect]
     Active Substance: GABAPENTIN
     Indication: NEUROPATHY PERIPHERAL
     Dosage: 600 MILLIGRAM, DAILY
     Route: 065
  3. GABAPENTIN. [Suspect]
     Active Substance: GABAPENTIN
     Dosage: 300 IN THE MORNING AND  900 MG AT NIGHT
     Route: 065

REACTIONS (7)
  - Mydriasis [Unknown]
  - Drug ineffective [Unknown]
  - Balance disorder [Unknown]
  - Depersonalisation/derealisation disorder [Unknown]
  - Anger [Unknown]
  - Memory impairment [Unknown]
  - Feeling abnormal [Unknown]
